FAERS Safety Report 5529634-8 (Version None)
Quarter: 2007Q4

REPORT INFORMATION
  Report Type: 
  Country: None (occurrence: None)
  Receive Date: 20071129
  Receipt Date: 20071109
  Transmission Date: 20080405
  Serious: Yes (Other)
  Sender: FDA-Public Use
  Company Number: GB-PFIZER INC-2007092909

PATIENT
  Age: 60 Year
  Sex: Male

DRUGS (3)
  1. LIPITOR [Suspect]
  2. RAMIPRIL [Concomitant]
  3. CO-TENIDONE [Concomitant]

REACTIONS (3)
  - INTERVERTEBRAL DISC DISORDER [None]
  - MUSCLE STRAIN [None]
  - MYALGIA [None]
